FAERS Safety Report 10623263 (Version 1)
Quarter: 2014Q4

REPORT INFORMATION
  Report Type: Spontaneous
  Country: US (occurrence: US)
  Receive Date: 20141203
  Receipt Date: 20141203
  Transmission Date: 20150529
  Serious: No
  Sender: FDA-Public Use
  Company Number: US-MALLINCKRODT-T201402014

PATIENT
  Sex: Female
  Weight: 65.76 kg

DRUGS (4)
  1. LYRICA [Concomitant]
     Active Substance: PREGABALIN
     Indication: FIBROMYALGIA
     Dosage: UNK, 3X/DAY
  2. METHOCARBAMOL. [Concomitant]
     Active Substance: METHOCARBAMOL
     Indication: PAIN
     Dosage: 500 MG, 4X/DAY
  3. EXALGO [Suspect]
     Active Substance: HYDROMORPHONE HYDROCHLORIDE
     Indication: PAIN
     Dosage: UNK, 2X/DAY
     Route: 065
  4. PERCOCET [Concomitant]
     Active Substance: ACETAMINOPHEN\OXYCODONE HYDROCHLORIDE
     Indication: PAIN
     Dosage: Q 6 HOURS

REACTIONS (2)
  - Drug effect decreased [Unknown]
  - Off label use [Unknown]
